FAERS Safety Report 20813666 (Version 1)
Quarter: 2022Q2

REPORT INFORMATION
  Report Type: Spontaneous
  Country: US (occurrence: US)
  Receive Date: 20220511
  Receipt Date: 20220511
  Transmission Date: 20220721
  Serious: No
  Sender: FDA-Public Use
  Company Number: US-BRISTOL-MYERS SQUIBB COMPANY-2022-032939

PATIENT
  Age: 68 Year
  Sex: Male

DRUGS (1)
  1. REVLIMID [Suspect]
     Active Substance: LENALIDOMIDE
     Indication: Hypokalaemia
     Dosage: TAKE 1 CAPSULE BY ?MOUTH DAILY FOR ?21 DAYS ?FOLLOWED BY 7 ?DAYS OFF
     Route: 048
     Dates: start: 20210525

REACTIONS (1)
  - Gout [Unknown]
